FAERS Safety Report 7354881-2 (Version None)
Quarter: 2011Q1

REPORT INFORMATION
  Report Type: 
  Country: None (occurrence: None)
  Receive Date: 20110316
  Receipt Date: 20110308
  Transmission Date: 20110831
  Serious: Yes (Other)
  Sender: FDA-Public Use
  Company Number: GB-TEVA-270545ISR

PATIENT
  Age: 83 Year
  Sex: Female

DRUGS (2)
  1. CLARITHROMYCIN [Suspect]
     Indication: PNEUMONIA
  2. SIMVASTATIN [Interacting]
     Indication: HYPERLIPIDAEMIA
     Route: 048

REACTIONS (6)
  - MUSCULAR WEAKNESS [None]
  - MYALGIA [None]
  - BLOOD CREATINE PHOSPHOKINASE INCREASED [None]
  - DRUG INTERACTION [None]
  - HYPERCALCAEMIA [None]
  - DEHYDRATION [None]
